FAERS Safety Report 6343608-9 (Version None)
Quarter: 2009Q3

REPORT INFORMATION
  Report Type: 
  Country: None (occurrence: None)
  Receive Date: 20090908
  Receipt Date: 20090830
  Transmission Date: 20100115
  Serious: Yes (Other)
  Sender: FDA-Public Use
  Company Number: US-BAYER-200929682NA

PATIENT
  Age: 53 Year
  Sex: Male

DRUGS (2)
  1. NEXAVAR [Suspect]
     Indication: RENAL CELL CARCINOMA
     Dosage: TOTAL DAILY DOSE: 800 MG  UNIT DOSE: 200 MG
     Route: 048
     Dates: start: 20090809
  2. OXYGEN [Concomitant]
     Dosage: 2 LITERS PER MINUTE

REACTIONS (4)
  - DIARRHOEA [None]
  - DYSPNOEA [None]
  - HEART RATE INCREASED [None]
  - WHEEZING [None]
